FAERS Safety Report 9189365 (Version 1)
Quarter: 2013Q1

REPORT INFORMATION
  Report Type: Spontaneous
  Country: BR (occurrence: BR)
  Receive Date: 20130326
  Receipt Date: 20130326
  Transmission Date: 20140127
  Serious: Yes (Hospitalization)
  Sender: FDA-Public Use
  Company Number: PHHY2013BR028306

PATIENT
  Age: 70 Year
  Sex: Male

DRUGS (1)
  1. DIOVAN AMLO FIX [Suspect]
     Indication: BLOOD PRESSURE ABNORMAL
     Dosage: 1 DF, DAILY (160 MG VALS, 10 MG AMLO)
     Route: 048
     Dates: end: 20130216

REACTIONS (2)
  - Gastric ulcer haemorrhage [Recovered/Resolved]
  - Infarction [Recovering/Resolving]
